FAERS Safety Report 25305818 (Version 1)
Quarter: 2025Q2

REPORT INFORMATION
  Report Type: Spontaneous
  Country: FR (occurrence: FR)
  Receive Date: 20250513
  Receipt Date: 20250513
  Transmission Date: 20250717
  Serious: Yes (Other)
  Sender: SANDOZ
  Company Number: FR-GSK-FR2025GSK057321

PATIENT
  Age: 35 Year
  Sex: Female

DRUGS (12)
  1. ATARAX [Suspect]
     Active Substance: HYDROXYZINE HYDROCHLORIDE
     Indication: Urticaria
     Dosage: 25 MG, 1D
     Route: 065
  2. DALTEPARIN SODIUM [Suspect]
     Active Substance: DALTEPARIN SODIUM
     Indication: Product used for unknown indication
     Route: 065
  3. BACITRACIN\PANCRELIPASE AMYLASE [Suspect]
     Active Substance: BACITRACIN\PANCRELIPASE AMYLASE
     Indication: Oropharyngeal pain
     Route: 065
  4. PHENOBARBITAL SODIUM\QUINIDINE [Suspect]
     Active Substance: PHENOBARBITAL SODIUM\QUINIDINE
     Indication: Product used for unknown indication
     Route: 065
  5. PARLODEL [Suspect]
     Active Substance: BROMOCRIPTINE MESYLATE
     Indication: Product used for unknown indication
     Route: 065
  6. POLARAMINE [Suspect]
     Active Substance: DEXCHLORPHENIRAMINE MALEATE
     Indication: Urticaria
     Dosage: 2 MG, 1D
     Route: 065
  7. RITODRINE HYDROCHLORIDE [Suspect]
     Active Substance: RITODRINE HYDROCHLORIDE
     Indication: Product used for unknown indication
     Route: 065
  8. PROPACETAMOL HYDROCHLORIDE [Suspect]
     Active Substance: PROPACETAMOL HYDROCHLORIDE
     Indication: Product used for unknown indication
     Route: 065
  9. KETOPROFEN [Suspect]
     Active Substance: KETOPROFEN
     Indication: Product used for unknown indication
     Route: 065
  10. ALBUTEROL SULFATE [Suspect]
     Active Substance: ALBUTEROL SULFATE
     Indication: Product used for unknown indication
     Route: 065
  11. SYNTOCINON [Suspect]
     Active Substance: OXYTOCIN
     Indication: Product used for unknown indication
     Route: 065
  12. CEFUROXIME [Suspect]
     Active Substance: CEFUROXIME
     Indication: Product used for unknown indication
     Route: 065

REACTIONS (6)
  - Dermatitis exfoliative generalised [Recovered/Resolved]
  - Drug hypersensitivity [Recovered/Resolved]
  - Rash morbilliform [Recovered/Resolved]
  - Lymphadenopathy [Unknown]
  - Pyrexia [Unknown]
  - Exposure during pregnancy [Unknown]
